FAERS Safety Report 7794408-4 (Version None)
Quarter: 2011Q4

REPORT INFORMATION
  Report Type: 
  Country: None (occurrence: None)
  Receive Date: 20111004
  Receipt Date: 20111004
  Transmission Date: 20120403
  Serious: Yes (Other)
  Sender: FDA-Public Use
  Company Number: None

PATIENT
  Age: 50 Year
  Sex: Female
  Weight: 54.884 kg

DRUGS (1)
  1. LETROZOLE [Suspect]
     Indication: ENDOMETRIOSIS
     Dosage: 2.5 MG
     Route: 048
     Dates: start: 20110930, end: 20111003

REACTIONS (3)
  - DISEASE RECURRENCE [None]
  - ENDOMETRIOSIS [None]
  - PRODUCT SUBSTITUTION ISSUE [None]
